FAERS Safety Report 20644232 (Version 8)
Quarter: 2023Q2

REPORT INFORMATION
  Report Type: Spontaneous
  Country: CA (occurrence: CA)
  Receive Date: 20220328
  Receipt Date: 20230606
  Transmission Date: 20230721
  Serious: Yes (Other)
  Sender: FDA-Public Use
  Company Number: CA-PFIZER INC-202101139071

PATIENT
  Age: 59 Year
  Sex: Female
  Weight: 77.9 kg

DRUGS (8)
  1. IBRANCE [Suspect]
     Active Substance: PALBOCICLIB
     Indication: Breast cancer metastatic
     Dosage: 125 MG, CYCLIC 125 MG, (1X/DAY FOR 21 DAYS FOLLOWED BY 7 DAYS OFF TREATMENT)
     Route: 048
     Dates: start: 20210328
  2. IBRANCE [Suspect]
     Active Substance: PALBOCICLIB
     Dosage: 125 MG, CYCLIC 125 MG, (1X/DAY FOR 21 DAYS FOLLOWED BY 7 DAYS OFF TREATMENT)
     Route: 048
     Dates: start: 20210927
  3. IBRANCE [Suspect]
     Active Substance: PALBOCICLIB
     Dosage: 125 MG, DAILY FOR 21 DAYS
     Route: 048
     Dates: start: 20211122
  4. IBRANCE [Suspect]
     Active Substance: PALBOCICLIB
     Dosage: 100 MG, DAILY 21DAYS FOLLOWED BY 7 DAY OFF
     Route: 048
     Dates: start: 20211220
  5. IBRANCE [Suspect]
     Active Substance: PALBOCICLIB
     Dosage: 125 MG, CYCLIC (125 MG, 3 WEEKS ON,1 WEEK OFF)
     Route: 048
  6. IBRANCE [Suspect]
     Active Substance: PALBOCICLIB
     Dosage: 125 MG, CYCLIC 21 DAYS FOLLOWED BY 7 DAYS OFF.
     Route: 048
  7. IBRANCE [Suspect]
     Active Substance: PALBOCICLIB
     Dosage: UNK, CYCLIC, (TOTAL 3 CYCLES)
     Dates: start: 202303
  8. LETROZOLE [Concomitant]
     Active Substance: LETROZOLE
     Indication: Breast cancer metastatic
     Dosage: 2.5 MG, 1X/DAY
     Dates: start: 20210909

REACTIONS (9)
  - Knee operation [Unknown]
  - Knee arthroplasty [Unknown]
  - Blood creatinine decreased [Unknown]
  - Blood creatinine increased [Unknown]
  - Body surface area increased [Unknown]
  - Discomfort [Unknown]
  - Weight increased [Unknown]
  - Weight decreased [Unknown]
  - Body surface area decreased [Unknown]

NARRATIVE: CASE EVENT DATE: 20211117
